FAERS Safety Report 4381582-5 (Version None)
Quarter: 2004Q2

REPORT INFORMATION
  Report Type: 
  Country: None (occurrence: None)
  Receive Date: 20040614
  Receipt Date: 20031010
  Transmission Date: 20050107
  Serious: Yes (Hospitalization)
  Sender: FDA-Public Use
  Company Number: WAES 0310USA01456

PATIENT
  Age: 56 Year
  Sex: Female
  Weight: 98.4306 kg

DRUGS (8)
  1. COZAAR [Suspect]
     Indication: CARDIAC FAILURE CONGESTIVE
     Dosage: 100 MG/DAILY/PO
     Route: 048
     Dates: start: 20030901, end: 20031008
  2. ALDACTONE [Concomitant]
  3. EFFEXOR [Concomitant]
  4. LASIX [Concomitant]
  5. PRINIVIL [Concomitant]
  6. TOPROL-XL [Concomitant]
  7. DIGOXIN [Concomitant]
  8. HYDRALAZINE [Concomitant]

REACTIONS (3)
  - PRURITUS [None]
  - RASH ERYTHEMATOUS [None]
  - RENAL FAILURE [None]
